FAERS Safety Report 19905099 (Version 3)
Quarter: 2021Q4

REPORT INFORMATION
  Report Type: Spontaneous
  Country: US (occurrence: US)
  Receive Date: 20211001
  Receipt Date: 20211018
  Transmission Date: 20220303
  Serious: No
  Sender: FDA-Public Use
  Company Number: US-AIMMUNE THERAPEUTICS, INC.-2021AIMT00584

PATIENT

DRUGS (7)
  1. PALFORZIA [Suspect]
     Active Substance: PEANUT
     Indication: Food allergy
     Dosage: 3 MG, 1X/DAY
     Route: 048
     Dates: start: 20210916, end: 20210924
  2. PALFORZIA [Suspect]
     Active Substance: PEANUT
     Dosage: 3 MG, 1X/DAY, LAST DOSE PRIOR STOMACH DISCOMFORT, BELLY ACHE, HEACHE AND RUNNY NOSE
     Route: 048
     Dates: start: 20210924, end: 20210924
  3. PALFORZIA [Suspect]
     Active Substance: PEANUT
     Dosage: 3 MG, 1X/DAY, RESTARTED 3 MG, LAST DOSE PRIOR CRAMPS AND NAUSEA
     Route: 048
     Dates: start: 20210926, end: 20210926
  4. PALFORZIA [Suspect]
     Active Substance: PEANUT
     Dosage: 1.5 MG, 1X/DAY, DECREASED
     Route: 048
     Dates: start: 20210927, end: 20211003
  5. PALFORZIA [Suspect]
     Active Substance: PEANUT
     Dosage: 1.5 MG, 1X/DAY, LAST DOSE PRIOR ABDOMINAL PAIN, VOMITING AND HIVES
     Route: 048
     Dates: start: 20211003, end: 20211003
  6. RENEW LIFE TRIPLE FIBER [Concomitant]
     Indication: Prophylaxis
  7. ZYRTEC [Concomitant]
     Active Substance: CETIRIZINE HYDROCHLORIDE
     Indication: Prophylaxis
     Dosage: UNK, 1X/DAY

REACTIONS (8)
  - Headache [Recovered/Resolved]
  - Rhinorrhoea [Recovered/Resolved]
  - Abdominal discomfort [Recovered/Resolved]
  - Abdominal pain [Recovered/Resolved]
  - Nausea [Recovered/Resolved]
  - Anaphylactic reaction [Recovered/Resolved]
  - Urticaria [Recovered/Resolved]
  - Vomiting [Recovered/Resolved]

NARRATIVE: CASE EVENT DATE: 20210924
